FAERS Safety Report 8555548-5 (Version None)
Quarter: 2012Q3

REPORT INFORMATION
  Report Type: 
  Country: None (occurrence: None)
  Receive Date: 20120731
  Receipt Date: 20110802
  Transmission Date: 20120928
  Serious: Yes (Other)
  Sender: FDA-Public Use
  Company Number: US-ASTRAZENECA-2010SE16011

PATIENT
  Age: 64 Year
  Sex: Female
  Weight: 83 kg

DRUGS (25)
  1. SEROQUEL [Suspect]
     Indication: HALLUCINATION, AUDITORY
     Route: 048
     Dates: start: 20000101
  2. SEROQUEL [Suspect]
     Indication: SUICIDAL IDEATION
     Route: 048
     Dates: start: 20000101
  3. SEROQUEL [Suspect]
     Route: 048
  4. SEROQUEL [Suspect]
     Route: 048
  5. SEROQUEL [Suspect]
     Route: 048
  6. PHENOBARBITAL TAB [Concomitant]
     Indication: CONVULSION
  7. SEROQUEL [Suspect]
     Route: 048
  8. SEROQUEL [Suspect]
     Route: 048
  9. SEROQUEL [Suspect]
     Route: 048
  10. LOVASTATIN [Concomitant]
     Indication: BLOOD CHOLESTEROL INCREASED
  11. SEROQUEL [Suspect]
     Indication: HALLUCINATION, VISUAL
     Route: 048
     Dates: start: 20000101
  12. RISPERIDONE [Suspect]
  13. FOLIC ACID [Concomitant]
  14. SEROQUEL [Suspect]
     Route: 048
  15. SEROQUEL [Suspect]
     Route: 048
  16. SEROQUEL [Suspect]
     Route: 048
  17. TOMAZEPAM [Concomitant]
  18. ZOLOFT [Concomitant]
  19. VISTERAL [Concomitant]
     Indication: ANXIETY
  20. SEROQUEL [Suspect]
     Route: 048
  21. SEROQUEL [Suspect]
     Route: 048
  22. GLYBURIDE [Concomitant]
     Indication: DIABETES MELLITUS
  23. SEROQUEL [Suspect]
     Indication: BIPOLAR DISORDER
     Route: 048
     Dates: start: 20000101
  24. SEROQUEL [Suspect]
     Route: 048
  25. DILANTIN [Concomitant]
     Indication: CONVULSION

REACTIONS (13)
  - GRAND MAL CONVULSION [None]
  - TACHYPHRENIA [None]
  - DRUG DOSE OMISSION [None]
  - INCORRECT DOSE ADMINISTERED [None]
  - APHAGIA [None]
  - HALLUCINATION, AUDITORY [None]
  - DEHYDRATION [None]
  - INSOMNIA [None]
  - WRONG TECHNIQUE IN DRUG USAGE PROCESS [None]
  - INFLUENZA [None]
  - FEELING ABNORMAL [None]
  - HALLUCINATION, VISUAL [None]
  - OFF LABEL USE [None]
